FAERS Safety Report 9184499 (Version 1)
Quarter: 2013Q1

REPORT INFORMATION
  Report Type: Spontaneous
  Country: US (occurrence: US)
  Receive Date: 20130322
  Receipt Date: 20130322
  Transmission Date: 20140127
  Serious: Yes (Hospitalization)
  Sender: FDA-Public Use
  Company Number: US-PFIZER INC-2013091788

PATIENT
  Age: 5 Day
  Sex: Female

DRUGS (1)
  1. TENORMIN [Suspect]
     Indication: HYPERTENSION
     Dosage: 50 MG, 2X/DAY
     Route: 063

REACTIONS (4)
  - Exposure during breast feeding [Unknown]
  - Cyanosis [Unknown]
  - Bradycardia [Unknown]
  - Hypotension [Unknown]
